FAERS Safety Report 10347398 (Version 1)
Quarter: 2014Q3

REPORT INFORMATION
  Report Type: Spontaneous
  Country: US (occurrence: US)
  Receive Date: 20140729
  Receipt Date: 20140729
  Transmission Date: 20150326
  Serious: No
  Sender: FDA-Public Use
  Company Number: US-009507513-1407USA012542

PATIENT
  Age: 93 Year
  Sex: Female

DRUGS (1)
  1. OXYTROL FOR WOMEN [Suspect]
     Active Substance: OXYBUTYNIN
     Indication: NOCTURIA
     Dosage: UNK, UNKNOWN
     Route: 062

REACTIONS (4)
  - Headache [Unknown]
  - Dry throat [Unknown]
  - Abdominal pain upper [Unknown]
  - Abnormal faeces [Unknown]

NARRATIVE: CASE EVENT DATE: 201407
